FAERS Safety Report 6465560-8 (Version None)
Quarter: 2009Q4

REPORT INFORMATION
  Report Type: 
  Country: None (occurrence: None)
  Receive Date: 20091124
  Receipt Date: 20091104
  Transmission Date: 20100525
  Serious: Yes (Other)
  Sender: FDA-Public Use
  Company Number: JPI-P-007856

PATIENT
  Age: 21 Year
  Sex: Male

DRUGS (1)
  1. FLUVOXAMINE MALEATE [Suspect]
     Indication: DEPRESSION
     Dosage: 100 MG (100 MG, 1 IN 1 D), ORAL
     Route: 048
     Dates: start: 20080201, end: 20080620

REACTIONS (1)
  - BRUGADA SYNDROME [None]
